FAERS Safety Report 7423316-3 (Version None)
Quarter: 2011Q2

REPORT INFORMATION
  Report Type: 
  Country: None (occurrence: None)
  Receive Date: 20110413
  Receipt Date: 20110413
  Transmission Date: 20111010
  Serious: Yes (Hospitalization)
  Sender: FDA-Public Use
  Company Number: None

PATIENT
  Age: 79 Year
  Sex: Male
  Weight: 60 kg

DRUGS (1)
  1. WARFARIN SODIUM [Suspect]
     Dosage: 3 MG EVERY DAY

REACTIONS (2)
  - HAEMORRHAGE [None]
  - EPISTAXIS [None]
